FAERS Safety Report 5820471-3 (Version None)
Quarter: 2008Q3

REPORT INFORMATION
  Report Type: 
  Country: None (occurrence: None)
  Receive Date: 20080724
  Receipt Date: 20070806
  Transmission Date: 20090109
  Serious: No
  Sender: FDA-Public Use
  Company Number: A0668372A

PATIENT
  Sex: Male

DRUGS (11)
  1. AVANDIA [Suspect]
     Dosage: 4MG TWICE PER DAY
     Route: 048
  2. METFORMIN [Concomitant]
  3. FINASTERIDE [Concomitant]
  4. FLOMAX [Concomitant]
  5. CARTIA XT [Concomitant]
  6. VYTORIN [Concomitant]
  7. BENICAR [Concomitant]
  8. UNKNOWN MEDICATION [Concomitant]
  9. FUROSEMIDE [Concomitant]
  10. POTASSIUM CHLORIDE [Concomitant]
  11. OMEPRAZOLE [Concomitant]

REACTIONS (2)
  - FLUID RETENTION [None]
  - HEART RATE IRREGULAR [None]
